FAERS Safety Report 21757351 (Version 1)
Quarter: 2022Q4

REPORT INFORMATION
  Report Type: Spontaneous
  Country: None (occurrence: US)
  Receive Date: 20221220
  Receipt Date: 20221220
  Transmission Date: 20230113
  Serious: No
  Sender: FDA-Public Use
  Company Number: US-P+L Developments of Newyork Corporation-2136024

PATIENT

DRUGS (2)
  1. DOCOSANOL [Suspect]
     Active Substance: DOCOSANOL
     Indication: Product used for unknown indication
     Route: 065
  2. DOCOSANOL [Suspect]
     Active Substance: DOCOSANOL
     Route: 065

REACTIONS (2)
  - Wrong technique in product usage process [Unknown]
  - Thermal burn [Recovering/Resolving]

NARRATIVE: CASE EVENT DATE: 20221208
